FAERS Safety Report 8106990-8 (Version None)
Quarter: 2012Q1

REPORT INFORMATION
  Report Type: 
  Country: None (occurrence: None)
  Receive Date: 20120202
  Receipt Date: 20120202
  Transmission Date: 20120608
  Serious: Yes (Other)
  Sender: FDA-Public Use
  Company Number: None

PATIENT
  Age: 40 Year
  Sex: Female
  Weight: 61.234 kg

DRUGS (1)
  1. PAROXETINE [Suspect]
     Indication: GENERALISED ANXIETY DISORDER
     Dosage: 20.0 MG
     Route: 048

REACTIONS (5)
  - INSOMNIA [None]
  - SUICIDAL IDEATION [None]
  - DECREASED APPETITE [None]
  - PANIC DISORDER [None]
  - PARAESTHESIA [None]
